FAERS Safety Report 7269809-3 (Version None)
Quarter: 2011Q1

REPORT INFORMATION
  Report Type: 
  Country: None (occurrence: None)
  Receive Date: 20110202
  Receipt Date: 20110124
  Transmission Date: 20110831
  Serious: Yes (Other)
  Sender: FDA-Public Use
  Company Number: ES-MPIJNJ-2011-00348

PATIENT

DRUGS (3)
  1. DEXAMETHASONE [Concomitant]
     Indication: MULTIPLE MYELOMA
     Dosage: 40 MG, UNK
     Dates: start: 20101223
  2. VELCADE [Suspect]
     Indication: MULTIPLE MYELOMA
     Dosage: 2.75 MG/M2, UNK
     Route: 065
     Dates: start: 20101223
  3. THERAPEUTIC RADIOPHARMACEUTICALS [Concomitant]
     Indication: MULTIPLE MYELOMA

REACTIONS (1)
  - TRANSAMINASES INCREASED [None]
